FAERS Safety Report 7763079-5 (Version None)
Quarter: 2011Q3

REPORT INFORMATION
  Report Type: 
  Country: None (occurrence: None)
  Receive Date: 20110920
  Receipt Date: 20110915
  Transmission Date: 20111222
  Serious: Yes (Hospitalization, Other)
  Sender: FDA-Public Use
  Company Number: US-PFIZER INC-2010177666

PATIENT
  Sex: Female

DRUGS (9)
  1. ALBUTEROL [Concomitant]
     Indication: DYSPNOEA
     Dosage: UNK
     Dates: start: 20070712, end: 20110101
  2. PREDNISONE [Concomitant]
     Dosage: UNK
     Dates: start: 20070808, end: 20100101
  3. PROTONIX [Concomitant]
     Indication: DYSPEPSIA
     Dosage: UNK
     Dates: start: 20070808, end: 20090101
  4. IPRATROPIUM [Concomitant]
     Indication: CHRONIC OBSTRUCTIVE PULMONARY DISEASE
     Dosage: UNK
     Dates: start: 20070801, end: 20110101
  5. ALPRAZOLAM [Concomitant]
     Indication: ANXIETY
     Dosage: UNK
     Dates: start: 20070808, end: 20080101
  6. SPIRIVA [Concomitant]
     Indication: CHRONIC OBSTRUCTIVE PULMONARY DISEASE
     Dosage: UNK
     Dates: start: 20070712, end: 20110101
  7. ADVAIR DISKUS 100/50 [Concomitant]
     Indication: ASTHMA
     Dosage: UNK
     Dates: start: 20070810, end: 20090101
  8. LEVAQUIN [Concomitant]
     Indication: CHRONIC OBSTRUCTIVE PULMONARY DISEASE
     Dosage: UNK
     Dates: start: 20070808, end: 20090101
  9. CHANTIX [Suspect]
     Indication: SMOKING CESSATION THERAPY
     Dosage: STARTER PACK
     Dates: start: 20070828, end: 20071001

REACTIONS (10)
  - MENTAL DISORDER [None]
  - EMOTIONAL DISTRESS [None]
  - AGGRESSION [None]
  - ABNORMAL BEHAVIOUR [None]
  - SUICIDE ATTEMPT [None]
  - ANXIETY [None]
  - SUICIDAL IDEATION [None]
  - DEPRESSION [None]
  - IMPAIRED DRIVING ABILITY [None]
  - ASTHMA [None]
